FAERS Safety Report 7534622-6 (Version None)
Quarter: 2011Q2

REPORT INFORMATION
  Report Type: 
  Country: None (occurrence: None)
  Receive Date: 20110609
  Receipt Date: 20101210
  Transmission Date: 20111010
  Serious: Yes (Death, Hospitalization)
  Sender: FDA-Public Use
  Company Number: PHHY2010JP19698

PATIENT
  Sex: Male
  Weight: 60 kg

DRUGS (10)
  1. EXJADE [Suspect]
     Indication: MYELODYSPLASTIC SYNDROME
     Dosage: 500 MG PER DAY.
     Route: 048
     Dates: start: 20090807, end: 20091001
  2. FAMOTIDINE [Concomitant]
     Indication: PROPHYLAXIS
     Dosage: 40 MG, UNK
     Route: 048
     Dates: start: 20090807
  3. MUCOSTA [Concomitant]
     Indication: PROPHYLAXIS
     Dosage: 300 MG, UNK
     Route: 048
     Dates: start: 20090807
  4. CIPROFLOXACIN HCL [Concomitant]
     Indication: PROPHYLAXIS
     Dosage: 600 MG, UNK
     Route: 048
     Dates: start: 20090807
  5. SULFAMETHOXAZOLE [Concomitant]
     Indication: PROPHYLAXIS
     Dosage: 1 DF, UNK
     Route: 048
     Dates: start: 20090807
  6. RED BLOOD CELLS, LEUCOCYTE DEPLETED [Concomitant]
     Dosage: 2 UNITS EVERY 2 WEEKS
     Dates: start: 20090904
  7. EXJADE [Suspect]
     Indication: IRON OVERLOAD
  8. RED BLOOD CELLS, LEUCOCYTE DEPLETED [Concomitant]
     Dosage: 2 U, UNK
     Dates: start: 20090807, end: 20090828
  9. ALLOPURINOL [Concomitant]
     Indication: PROPHYLAXIS
     Dosage: 200 MG, UNK
     Route: 048
     Dates: start: 20090807
  10. DIFLUCAN [Concomitant]
     Indication: PROPHYLAXIS
     Dosage: 200 MG, UNK
     Route: 048
     Dates: start: 20090807

REACTIONS (3)
  - LEUKAEMIA [None]
  - NEOPLASM MALIGNANT [None]
  - WHITE BLOOD CELL COUNT INCREASED [None]
